FAERS Safety Report 10339967 (Version 1)
Quarter: 2014Q3

REPORT INFORMATION
  Report Type: Spontaneous
  Country: BE (occurrence: BE)
  Receive Date: 20140724
  Receipt Date: 20140724
  Transmission Date: 20150326
  Serious: Yes (Life-Threatening, Hospitalization)
  Sender: FDA-Public Use
  Company Number: BE-JNJFOC-20140715756

PATIENT
  Age: 74 Year
  Sex: Female
  Weight: 60 kg

DRUGS (9)
  1. CYMBALTA [Concomitant]
     Active Substance: DULOXETINE HYDROCHLORIDE
     Route: 048
     Dates: end: 20140526
  2. SERLAIN [Concomitant]
     Active Substance: SERTRALINE HYDROCHLORIDE
     Dosage: 1 TIME
     Route: 048
     Dates: start: 20121002, end: 20140526
  3. DOMPERIDONE [Concomitant]
     Active Substance: DOMPERIDONE
     Route: 048
     Dates: end: 20140526
  4. D-CURE [Concomitant]
     Route: 048
     Dates: end: 20140526
  5. PENTASA [Concomitant]
     Active Substance: MESALAMINE
     Dosage: 2 TIMES
     Route: 048
     Dates: start: 20030221, end: 20140526
  6. ENTEROL NOS [Concomitant]
     Dosage: 3 TIMES
     Route: 048
     Dates: end: 20140526
  7. BAREXAL [Concomitant]
     Route: 048
     Dates: end: 20140526
  8. REMICADE [Suspect]
     Active Substance: INFLIXIMAB
     Indication: COLITIS ULCERATIVE
     Route: 042
     Dates: start: 20120811, end: 20140417
  9. REMERGON [Concomitant]
     Active Substance: MIRTAZAPINE
     Dosage: 1 TIME
     Route: 048
     Dates: start: 20100716, end: 20140526

REACTIONS (3)
  - Tuberculosis [Not Recovered/Not Resolved]
  - Acute respiratory distress syndrome [Not Recovered/Not Resolved]
  - Large intestine perforation [Not Recovered/Not Resolved]

NARRATIVE: CASE EVENT DATE: 20140526
